FAERS Safety Report 19253160 (Version 1)
Quarter: 2021Q2

REPORT INFORMATION
  Report Type: Spontaneous
  Country: RU (occurrence: RU)
  Receive Date: 20210513
  Receipt Date: 20210513
  Transmission Date: 20210717
  Serious: Yes (Hospitalization)
  Sender: FDA-Public Use
  Company Number: RU-JNJFOC-20210519830

PATIENT
  Age: 53 Year
  Sex: Female

DRUGS (3)
  1. SOTAHEXAL [Suspect]
     Active Substance: SOTALOL
     Indication: COMPLETED SUICIDE
     Dosage: 6 TABLETS
     Route: 065
     Dates: start: 20210425, end: 20210425
  2. PERINDOPRIL [Suspect]
     Active Substance: PERINDOPRIL
     Indication: PRODUCT USED FOR UNKNOWN INDICATION
     Route: 065
  3. RIVAROXABAN [Suspect]
     Active Substance: RIVAROXABAN
     Indication: COMPLETED SUICIDE
     Dosage: 8 TABLETS
     Route: 065
     Dates: start: 20210425, end: 20210425

REACTIONS (3)
  - Nausea [Unknown]
  - Dizziness [Unknown]
  - Asthenia [Unknown]

NARRATIVE: CASE EVENT DATE: 20210425
